FAERS Safety Report 6408832-5 (Version None)
Quarter: 2009Q4

REPORT INFORMATION
  Report Type: 
  Country: None (occurrence: None)
  Receive Date: 20091019
  Receipt Date: 20091012
  Transmission Date: 20100525
  Serious: Yes (Hospitalization)
  Sender: FDA-Public Use
  Company Number: 230022J09AUS

PATIENT
  Age: 56 Year
  Sex: Female

DRUGS (5)
  1. REBIF [Suspect]
     Indication: MULTIPLE SCLEROSIS
     Dosage: SUBCUTANEOUS; 44 MCG, SUBCUTANEOUS
     Route: 058
     Dates: start: 20090728
  2. REBIF [Suspect]
     Indication: MULTIPLE SCLEROSIS
     Dosage: SUBCUTANEOUS; 44 MCG, SUBCUTANEOUS
     Route: 058
     Dates: start: 20090801
  3. ISOPTIN [Concomitant]
  4. ANTIHISTAMINE (ANTIHISTAMINES) [Concomitant]
  5. ACETAMINOPHEN [Concomitant]

REACTIONS (3)
  - CONDITION AGGRAVATED [None]
  - MIGRAINE [None]
  - NO THERAPEUTIC RESPONSE [None]
